FAERS Safety Report 7373679 (Version 3)
Quarter: 2012Q4

REPORT INFORMATION
  Report Type: Report from Study
  Country: FR (occurrence: FR)
  Receive Date: 20100503
  Receipt Date: 20120921
  Transmission Date: 20130627
  Serious: Yes (Hospitalization)
  Sender: FDA-Public Use
  Company Number: PHHO2010FR06188

PATIENT
  Age: 50 Year
  Sex: Male
  Weight: 81.5 kg

DRUGS (5)
  1. MYCOPHENOLIC ACID [Suspect]
     Indication: RENAL TRANSPLANT
     Dosage: 2150 mg, QD
     Route: 048
     Dates: start: 20100401
  2. NEORAL [Suspect]
     Indication: RENAL TRANSPLANT
     Dosage: 550 mg, QD
     Route: 048
     Dates: start: 20100401
  3. CERTICAN [Suspect]
     Indication: RENAL TRANSPLANT
     Dosage: 3 mg, QD
     Route: 048
     Dates: start: 20100722, end: 20100908
  4. CERTICAN [Suspect]
     Dosage: 4 mg, QD
     Route: 048
     Dates: start: 20100909, end: 20100915
  5. CERTICAN [Suspect]
     Dosage: 5 mg, QD
     Route: 048
     Dates: start: 20100916, end: 20100922

REACTIONS (2)
  - Phlebitis [Recovered/Resolved]
  - Pain in extremity [Recovered/Resolved]
